FAERS Safety Report 18385270 (Version 9)
Quarter: 2021Q2

REPORT INFORMATION
  Report Type: Spontaneous
  Country: CA (occurrence: CA)
  Receive Date: 20201015
  Receipt Date: 20210618
  Transmission Date: 20210717
  Serious: Yes (Other)
  Sender: FDA-Public Use
  Company Number: CA-CELLTRION INC.-2020CA020613

PATIENT

DRUGS (22)
  1. INFLECTRA [Suspect]
     Active Substance: INFLIXIMAB-DYYB
     Dosage: 5 MG/KG, AT 0, 2, 6, THEN EVERY 8 WEEKS
     Route: 042
     Dates: start: 20200305
  2. DIMENHYDRINATE. [Concomitant]
     Active Substance: DIMENHYDRINATE
     Dosage: 50 MG
     Route: 048
     Dates: start: 20210612
  3. DIPHENHYDRAMINE. [Concomitant]
     Active Substance: DIPHENHYDRAMINE
     Dosage: 50 MG
     Route: 042
     Dates: start: 20210201, end: 20210201
  4. LOPERAMIDE [Concomitant]
     Active Substance: LOPERAMIDE
     Dosage: 1 DF, 3X/DAY
     Route: 048
  5. INFLECTRA [Suspect]
     Active Substance: INFLIXIMAB-DYYB
     Dosage: 5 MG/KG, AT 0, 2, 6, THEN EVERY 8 WEEKS
     Route: 042
     Dates: start: 20200420
  6. INFLECTRA [Suspect]
     Active Substance: INFLIXIMAB-DYYB
     Dosage: 5 MG/KG, AT 0, 2, 6, THEN EVERY 8 WEEKS
     Route: 042
     Dates: start: 20210201
  7. BENADRYL [Concomitant]
     Active Substance: DIPHENHYDRAMINE HYDROCHLORIDE
     Dosage: UNK
     Route: 042
     Dates: start: 20210330, end: 20210330
  8. CAL?D [Concomitant]
     Active Substance: CALCIUM CARBONATE\CHOLECALCIFEROL
     Dosage: 1 DF, 2X/DAY
     Route: 065
  9. DIPHENHYDRAMINE. [Concomitant]
     Active Substance: DIPHENHYDRAMINE
     Dosage: 50 MG
     Route: 048
     Dates: start: 20210612
  10. INFLECTRA [Suspect]
     Active Substance: INFLIXIMAB-DYYB
     Dosage: 5 MG/KG, AT 0, 2, 6, THEN EVERY 8 WEEKS
     Route: 042
     Dates: start: 20200305
  11. INFLECTRA [Suspect]
     Active Substance: INFLIXIMAB-DYYB
     Dosage: 5 MG/KG, AT 0, 2, 6, THEN EVERY 8 WEEKS
     Route: 042
     Dates: start: 20200903
  12. INFLECTRA [Suspect]
     Active Substance: INFLIXIMAB-DYYB
     Indication: CROHN^S DISEASE
     Dosage: 5 MG/KG, AT 0, 2, 6, THEN EVERY 8 WEEKS
     Route: 042
     Dates: start: 20200220, end: 20200220
  13. INFLECTRA [Suspect]
     Active Substance: INFLIXIMAB-DYYB
     Dosage: 5 MG/KG, AT 0, 2, 6, THEN EVERY 8 WEEKS
     Route: 042
     Dates: start: 20200708
  14. INFLECTRA [Suspect]
     Active Substance: INFLIXIMAB-DYYB
     Dosage: 5 MG/KG AT 0, 2, 6, THEN EVERY 8 WEEKS
     Route: 042
     Dates: start: 20210612
  15. ACETAMINOPHEN. [Concomitant]
     Active Substance: ACETAMINOPHEN
     Indication: PREMEDICATION
     Dosage: 650 MG
     Dates: start: 20200708, end: 20200708
  16. ACETAMINOPHEN. [Concomitant]
     Active Substance: ACETAMINOPHEN
     Dosage: 650 MG
     Route: 048
     Dates: start: 20210612
  17. DIMENHYDRINATE. [Concomitant]
     Active Substance: DIMENHYDRINATE
     Indication: PREMEDICATION
     Dosage: 50 MG
     Dates: start: 20200708, end: 20200708
  18. DIPHENHYDRAMINE. [Concomitant]
     Active Substance: DIPHENHYDRAMINE
     Indication: PREMEDICATION
     Dosage: 50 MG
     Dates: start: 20200708, end: 20200708
  19. DIMENHYDRINATE. [Concomitant]
     Active Substance: DIMENHYDRINATE
     Dosage: 50 MG
     Route: 042
     Dates: start: 20210201, end: 20210201
  20. PREDNISONE. [Concomitant]
     Active Substance: PREDNISONE
     Dosage: 1 DF
     Route: 065
     Dates: start: 202003
  21. INFLECTRA [Suspect]
     Active Substance: INFLIXIMAB-DYYB
     Dosage: 5 MG/KG AT 0, 2, 6, THEN EVERY 8 WEEKS
     Route: 042
     Dates: start: 20210330
  22. ACETAMINOPHEN. [Concomitant]
     Active Substance: ACETAMINOPHEN
     Dosage: 650 MG
     Route: 048
     Dates: start: 20210201, end: 20210201

REACTIONS (17)
  - Palpitations [Recovering/Resolving]
  - Dysphagia [Recovering/Resolving]
  - Infusion site erythema [Recovered/Resolved]
  - Body temperature increased [Recovering/Resolving]
  - Chest discomfort [Recovering/Resolving]
  - Chills [Recovering/Resolving]
  - Inappropriate schedule of product administration [Unknown]
  - Pruritus [Recovering/Resolving]
  - Heart rate decreased [Not Recovered/Not Resolved]
  - Vomiting [Unknown]
  - Condition aggravated [Unknown]
  - Erythema [Recovering/Resolving]
  - Feeling cold [Recovering/Resolving]
  - Hot flush [Recovering/Resolving]
  - Weight decreased [Unknown]
  - Malaise [Recovering/Resolving]
  - Skin warm [Recovering/Resolving]

NARRATIVE: CASE EVENT DATE: 202003
